FAERS Safety Report 4682452-5 (Version None)
Quarter: 2005Q2

REPORT INFORMATION
  Report Type: 
  Country: None (occurrence: None)
  Receive Date: 20050602
  Receipt Date: 20050602
  Transmission Date: 20051028
  Serious: Yes (Other)
  Sender: FDA-Public Use
  Company Number: None

PATIENT
  Age: 64 Year
  Sex: Female
  Weight: 87.9978 kg

DRUGS (1)
  1. DURAGESIC-25 [Suspect]
     Dosage: 25 PATCH Q 3RD DAY
     Dates: start: 20041217

REACTIONS (2)
  - DEVICE INEFFECTIVE [None]
  - THERAPEUTIC RESPONSE UNEXPECTED WITH DRUG SUBSTITUTION [None]
